FAERS Safety Report 8070620 (Version 2)
Quarter: 2013Q4

REPORT INFORMATION
  Report Type: Spontaneous
  Country: US (occurrence: US)
  Receive Date: 20110805
  Receipt Date: 20131125
  Transmission Date: 20140711
  Serious: Yes (Other)
  Sender: FDA-Public Use
  Company Number: US-JNJFOC-20110712440

PATIENT
  Sex: Female
  Weight: 40.82 kg

DRUGS (9)
  1. DURAGESIC [Suspect]
     Indication: NEURALGIA
     Route: 062
  2. DURAGESIC [Suspect]
     Indication: NEURALGIA
     Route: 062
  3. DURAGESIC [Suspect]
     Indication: NEURALGIA
     Route: 062
     Dates: end: 2008
  4. TOPAMAX [Suspect]
     Indication: NEURALGIA
     Route: 048
     Dates: start: 2008
  5. SYNTHROID [Concomitant]
     Indication: HYPOTHYROIDISM
     Route: 048
     Dates: start: 1990
  6. XANAX [Concomitant]
     Indication: ANXIETY
     Route: 048
  7. HCTZ [Concomitant]
     Indication: BLOOD PRESSURE
     Route: 048
     Dates: start: 2008
  8. PROMETHAZINE [Concomitant]
     Indication: NAUSEA
     Route: 048
  9. CELEXA [Concomitant]
     Indication: DEPRESSION
     Route: 048

REACTIONS (9)
  - Weight decreased [Unknown]
  - Aphonia [Not Recovered/Not Resolved]
  - Herpes virus infection [Not Recovered/Not Resolved]
  - Product commingling [Unknown]
  - Drug ineffective [Unknown]
  - Malaise [Not Recovered/Not Resolved]
  - Pain [Not Recovered/Not Resolved]
  - Hyperhidrosis [Not Recovered/Not Resolved]
  - Stress [Not Recovered/Not Resolved]
